FAERS Safety Report 17811061 (Version 1)
Quarter: 2020Q2

REPORT INFORMATION
  Report Type: Report from Study
  Country: IT (occurrence: IT)
  Receive Date: 20200521
  Receipt Date: 20200521
  Transmission Date: 20200714
  Serious: Yes (Other)
  Sender: FDA-Public Use
  Company Number: IT-MYLANLABS-2020M1050931

PATIENT
  Age: 62 Year
  Sex: Female

DRUGS (2)
  1. PACLITAXEL. [Suspect]
     Active Substance: PACLITAXEL
     Indication: HETEROPLASIA
     Dosage: UNK
     Route: 042
     Dates: start: 20200123, end: 20200123
  2. CARBOPLATIN. [Suspect]
     Active Substance: CARBOPLATIN
     Indication: HETEROPLASIA
     Dosage: UNK
     Route: 042
     Dates: start: 20200123, end: 20200123

REACTIONS (2)
  - Syncope [Not Recovered/Not Resolved]
  - Gastroenteritis [Not Recovered/Not Resolved]

NARRATIVE: CASE EVENT DATE: 20200130
